FAERS Safety Report 4286815-1 (Version None)
Quarter: 2004Q1

REPORT INFORMATION
  Report Type: 
  Country: None (occurrence: None)
  Receive Date: 20040206
  Receipt Date: 20031219
  Transmission Date: 20041129
  Serious: Yes (Life-Threatening, Hospitalization, Disabling)
  Sender: FDA-Public Use
  Company Number: JP-ROCHE-354404

PATIENT
  Age: 57 Year
  Sex: Male

DRUGS (16)
  1. MIDAZOLAM HCL [Suspect]
     Indication: SEDATION
     Dosage: 2 ML IN 18 ML OF NORMAL SALINE AT 2 ML/HOUR.
     Route: 041
     Dates: start: 20031204, end: 20031206
  2. MIDAZOLAM HCL [Suspect]
     Route: 041
     Dates: start: 20031208, end: 20031208
  3. MIDAZOLAM HCL [Suspect]
     Route: 041
     Dates: start: 20031208, end: 20031208
  4. STRONG NEO-MINOPHAGEN C [Concomitant]
     Indication: HEPATITIS FULMINANT
     Route: 041
     Dates: start: 20031202, end: 20031203
  5. NAFAMOSTAT MESILATE [Concomitant]
     Indication: DISSEMINATED INTRAVASCULAR COAGULATION
     Route: 041
     Dates: start: 20031203, end: 20031212
  6. MORIAMIN [Concomitant]
     Indication: HEPATITIS FULMINANT
     Route: 041
     Dates: start: 20031201, end: 20031204
  7. OMEPRAZOLE [Concomitant]
     Indication: UPPER GASTROINTESTINAL HAEMORRHAGE
     Route: 041
     Dates: start: 20031204, end: 20031212
  8. METHYLPREDNISOLONE SODIUM SUCCINATE [Concomitant]
     Indication: HEPATITIS FULMINANT
     Route: 041
     Dates: start: 20031204, end: 20031212
  9. 1 CONCOMITANT DRUG [Concomitant]
     Dosage: DRUG REPORTED AS ELASPOL (SIVELESTAT SODIUM HYDRATE).
     Route: 041
     Dates: start: 20031205, end: 20031208
  10. ANTITHROMBIN III [Concomitant]
     Indication: DISSEMINATED INTRAVASCULAR COAGULATION
     Dosage: REPORTED AS NEURT (HUMAN ANTI-THROMBIN III CONCENTRATED).  DOSAGE: 1500 DF QD.
     Route: 058
     Dates: start: 20031206, end: 20031208
  11. ANTITHROMBIN III [Concomitant]
     Dosage: REPORTED AS NONTHRON (HUMAN ANTI-THROMBIN III CONCENTRATED).  DOSAGE: 1500 DF QD.
     Route: 058
     Dates: start: 20031207, end: 20031215
  12. TIENAM [Concomitant]
     Indication: PNEUMONIA
     Route: 041
     Dates: start: 20031207, end: 20031216
  13. CALCIUM GLUCONATE [Concomitant]
     Indication: HYPOCALCAEMIA
     Route: 041
     Dates: start: 20031207, end: 20031215
  14. GLUCAGON [Concomitant]
     Indication: HEPATITIS FULMINANT
     Route: 041
     Dates: start: 20031207, end: 20031216
  15. GLYCERYL TRINITRATE [Concomitant]
     Indication: HYPERTENSION
     Dates: start: 20031207, end: 20031211
  16. THIOPENTAL SODIUM [Concomitant]
     Indication: SEDATION
     Route: 041
     Dates: start: 20031208, end: 20031213

REACTIONS (11)
  - ACUTE RESPIRATORY DISTRESS SYNDROME [None]
  - ALCOHOLIC LIVER DISEASE [None]
  - CARDIAC ARREST [None]
  - CONVULSION [None]
  - HAEMODIALYSIS [None]
  - HEPATIC ENCEPHALOPATHY [None]
  - HEPATITIS FULMINANT [None]
  - HYPOCALCAEMIA [None]
  - PNEUMONIA [None]
  - VENTRICULAR EXTRASYSTOLES [None]
  - VENTRICULAR TACHYCARDIA [None]
